FAERS Safety Report 5471260-3 (Version None)
Quarter: 2007Q3

REPORT INFORMATION
  Report Type: 
  Country: None (occurrence: None)
  Receive Date: 20070928
  Receipt Date: 20070921
  Transmission Date: 20080115
  Serious: Yes (Other)
  Sender: FDA-Public Use
  Company Number: FR-GILEAD-2007-0013487

PATIENT
  Age: 44 Year
  Sex: Female

DRUGS (5)
  1. VIREAD [Suspect]
     Indication: HIV INFECTION
  2. 3TC [Concomitant]
  3. TELZIR [Concomitant]
  4. PAROXETINE [Concomitant]
  5. XANAX [Concomitant]

REACTIONS (2)
  - DRUG INTERACTION [None]
  - PARAESTHESIA [None]
